FAERS Safety Report 14032061 (Version 5)
Quarter: 2020Q4

REPORT INFORMATION
  Report Type: Report from Study
  Country: JP (occurrence: JP)
  Receive Date: 20171002
  Receipt Date: 20201209
  Transmission Date: 20210113
  Serious: Yes (Death, Hospitalization)
  Sender: FDA-Public Use
  Company Number: JP-INCYTE CORPORATION-2017IN000144

PATIENT

DRUGS (7)
  1. RED BLOOD CELLS, CONCENTRATED [Concomitant]
     Active Substance: HUMAN RED BLOOD CELL
     Indication: MYELOFIBROSIS
     Dosage: 2 IU, UNK
     Route: 042
     Dates: start: 20170805, end: 20170915
  2. JAKAVI [Suspect]
     Active Substance: RUXOLITINIB
     Dosage: 20 MG, BID
     Route: 048
     Dates: start: 20170810, end: 20170816
  3. JAKAVI [Suspect]
     Active Substance: RUXOLITINIB
     Dosage: 25 MG, BID
     Route: 048
     Dates: start: 20170817, end: 20170913
  4. JAKAVI [Suspect]
     Active Substance: RUXOLITINIB
     Dosage: 15 MG, BID
     Route: 048
     Dates: start: 20150929, end: 20170720
  5. JAKAVI [Suspect]
     Active Substance: RUXOLITINIB
     Dosage: 15 MG, BID
     Route: 048
     Dates: start: 20170804, end: 20170809
  6. JAKAVI [Suspect]
     Active Substance: RUXOLITINIB
     Indication: MYELOFIBROSIS
     Dosage: 20 MG, BID
     Route: 048
     Dates: start: 20150721, end: 20150915
  7. JAKAVI [Suspect]
     Active Substance: RUXOLITINIB
     Dosage: 10 MG, BID
     Route: 048
     Dates: start: 20150915, end: 20150929

REACTIONS (14)
  - Gamma-glutamyltransferase abnormal [Fatal]
  - Myelofibrosis [Fatal]
  - Haemorrhage [Fatal]
  - Platelet count decreased [Fatal]
  - Blood alkaline phosphatase increased [Fatal]
  - Aspartate aminotransferase increased [Fatal]
  - White blood cell count decreased [Fatal]
  - Therapeutic response decreased [Unknown]
  - Myelosuppression [Fatal]
  - Anaemia [Recovered/Resolved]
  - Anaemia [Fatal]
  - C-reactive protein increased [Fatal]
  - Blood uric acid increased [Fatal]
  - Infection [Fatal]

NARRATIVE: CASE EVENT DATE: 20150901
